FAERS Safety Report 20054874 (Version 1)
Quarter: 2021Q4

REPORT INFORMATION
  Report Type: Spontaneous
  Country: JP (occurrence: JP)
  Receive Date: 20211110
  Receipt Date: 20211110
  Transmission Date: 20220303
  Serious: Yes (Hospitalization)
  Sender: FDA-Public Use
  Company Number: JP-NOVARTISPH-NVSJ2021JP018347

PATIENT
  Age: 61 Year
  Sex: Female

DRUGS (2)
  1. TEGRETOL [Suspect]
     Active Substance: CARBAMAZEPINE
     Indication: Impulse-control disorder
     Dosage: 400 MG
     Route: 065
  2. LITHIUM CARBONATE [Suspect]
     Active Substance: LITHIUM CARBONATE
     Indication: Mood swings
     Dosage: 900 MG
     Route: 065

REACTIONS (2)
  - Toxicity to various agents [Recovering/Resolving]
  - Nephrogenic diabetes insipidus [Recovering/Resolving]
